FAERS Safety Report 9940625 (Version 2)
Quarter: 2014Q1

REPORT INFORMATION
  Report Type: Report from Study
  Country: US (occurrence: US)
  Receive Date: 20140303
  Receipt Date: 20140324
  Transmission Date: 20141002
  Serious: Yes (Hospitalization)
  Sender: FDA-Public Use
  Company Number: US-ACTELION-A-NJ2014-95370

PATIENT
  Age: 48 Year
  Sex: Female

DRUGS (10)
  1. TRACLEER [Suspect]
     Indication: PULMONARY ARTERIAL HYPERTENSION
     Dosage: 125 MG, BID
     Route: 048
  2. LASIX [Concomitant]
     Dosage: 10 MG, UNK
  3. ALLOPURINOL [Concomitant]
  4. ASPIRIN [Concomitant]
     Dosage: 81 MG, UNK
  5. CYANOCOBALAMIN [Concomitant]
     Dosage: 100 MCG, UNK
  6. LEVOTHYROXIN [Concomitant]
     Dosage: 100 UNK, UNK
  7. METOPROLOL [Concomitant]
     Dosage: 25 MG, UNK
  8. MONTELUKAST [Concomitant]
     Dosage: 10 MG, UNK
  9. OLOPATADINE [Concomitant]
  10. ALCAFTADINE [Concomitant]

REACTIONS (10)
  - Gastric ulcer [Recovered/Resolved]
  - Abdominal pain [Recovered/Resolved]
  - Gastrointestinal haemorrhage [Recovering/Resolving]
  - Haematemesis [Recovering/Resolving]
  - Rectal haemorrhage [Recovering/Resolving]
  - Melaena [Recovering/Resolving]
  - Polycythaemia [Recovering/Resolving]
  - Convulsion [Recovered/Resolved]
  - Epilepsy [Recovered/Resolved]
  - Agitation [Recovered/Resolved]
